FAERS Safety Report 17062312 (Version 1)
Quarter: 2019Q4

REPORT INFORMATION
  Report Type: Spontaneous
  Country: CN (occurrence: CN)
  Receive Date: 20191122
  Receipt Date: 20191122
  Transmission Date: 20200122
  Serious: Yes (Hospitalization)
  Sender: FDA-Public Use
  Company Number: CN-B.I. PHARMACEUTICALS,INC./RIDGEFIELD-2019-BI-114489

PATIENT
  Age: 86 Year
  Sex: Male

DRUGS (1)
  1. PRADAXA [Suspect]
     Active Substance: DABIGATRAN ETEXILATE MESYLATE
     Indication: ATRIAL FIBRILLATION
     Route: 065
     Dates: end: 20191114

REACTIONS (7)
  - Shock haemorrhagic [Unknown]
  - Respiratory failure [Unknown]
  - Pneumonia [Unknown]
  - Faeces discoloured [Unknown]
  - Hypoproteinaemia [Unknown]
  - Gastrointestinal haemorrhage [Unknown]
  - Renal impairment [Unknown]

NARRATIVE: CASE EVENT DATE: 20191114
